FAERS Safety Report 7560800-6 (Version None)
Quarter: 2011Q2

REPORT INFORMATION
  Report Type: 
  Country: None (occurrence: None)
  Receive Date: 20110621
  Receipt Date: 20110616
  Transmission Date: 20111010
  Serious: Yes (Hospitalization)
  Sender: FDA-Public Use
  Company Number: DE-ABBOTT-10P-062-0680041-00

PATIENT
  Age: 81 Year
  Sex: Female

DRUGS (4)
  1. OMEPRAZOLE [Concomitant]
     Indication: PRODUCT USED FOR UNKNOWN INDICATION
     Dates: start: 20090930
  2. ZEMPLAR [Suspect]
     Indication: HYPERPARATHYROIDISM SECONDARY
  3. RAMIPRIL [Concomitant]
     Indication: PRODUCT USED FOR UNKNOWN INDICATION
     Dates: start: 20090930
  4. NITRENDIPIN [Concomitant]
     Indication: PRODUCT USED FOR UNKNOWN INDICATION
     Dates: start: 20100407

REACTIONS (2)
  - GASTRITIS [None]
  - COLITIS [None]
